FAERS Safety Report 18916058 (Version 1)
Quarter: 2021Q1

REPORT INFORMATION
  Report Type: Spontaneous
  Country: US (occurrence: US)
  Receive Date: 20210218
  Receipt Date: 20210218
  Transmission Date: 20210420
  Serious: No
  Sender: FDA-Public Use
  Company Number: US-ALKEM LABORATORIES LIMITED-US-ALKEM-2020-09587

PATIENT
  Age: 85 Year
  Sex: Female

DRUGS (1)
  1. SILVER SULFADIAZINE. [Suspect]
     Active Substance: SILVER SULFADIAZINE
     Indication: RADIATION INJURY
     Dosage: 1 % (W/W) (3 TIMES A DAY)
     Route: 061
     Dates: start: 20210105

REACTIONS (2)
  - Pruritus [Not Recovered/Not Resolved]
  - Rash [Not Recovered/Not Resolved]

NARRATIVE: CASE EVENT DATE: 20210105
